FAERS Safety Report 14258479 (Version 1)
Quarter: 2017Q4

REPORT INFORMATION
  Report Type: Spontaneous
  Country: US (occurrence: US)
  Receive Date: 20171202
  Receipt Date: 20171202
  Transmission Date: 20180321
  Serious: Yes (Disabling)
  Sender: FDA-Public Use
  Company Number: None

PATIENT
  Age: 66 Year
  Sex: Female
  Weight: 65.25 kg

DRUGS (4)
  1. VITAMIN D [Concomitant]
     Active Substance: CHOLECALCIFEROL
  2. LEVOXYL [Concomitant]
     Active Substance: LEVOTHYROXINE SODIUM
  3. CORTICOSTEROIDS [Suspect]
     Active Substance: CORTICOSTEROID NOS
     Indication: ECZEMA
     Route: 061
  4. TURMERIC [Concomitant]
     Active Substance: HERBALS\TURMERIC

REACTIONS (9)
  - Autoimmune thyroiditis [None]
  - Crying [None]
  - Impaired healing [None]
  - Pruritus [None]
  - Gluten sensitivity [None]
  - Gastrointestinal disorder [None]
  - Skin exfoliation [None]
  - Autoimmune disorder [None]
  - Milk allergy [None]

NARRATIVE: CASE EVENT DATE: 20160325
